FAERS Safety Report 7908067-0 (Version None)
Quarter: 2011Q4

REPORT INFORMATION
  Report Type: 
  Country: None (occurrence: None)
  Receive Date: 20111111
  Receipt Date: 20111103
  Transmission Date: 20120403
  Serious: Yes (Other)
  Sender: FDA-Public Use
  Company Number: US-BIOGENIDEC-2011BI031024

PATIENT
  Age: 48 Year
  Sex: Female

DRUGS (26)
  1. IBUPROFEN [Concomitant]
     Route: 048
  2. FEXOFENADINE [Concomitant]
     Indication: MULTIPLE ALLERGIES
     Route: 048
  3. ZOFRAN [Concomitant]
     Indication: NAUSEA
     Route: 048
  4. VICODIN [Concomitant]
  5. CALCIUM [Concomitant]
     Route: 048
  6. SELENIUM [Concomitant]
     Route: 048
  7. VITAMIN D [Concomitant]
  8. METHYLPHENIDATE [Concomitant]
     Route: 048
  9. LIPITOR [Concomitant]
     Route: 048
  10. CLONAZEPAM [Concomitant]
     Route: 048
  11. ACTONEL [Concomitant]
     Route: 048
  12. PHENYTOIN SODIUM [Concomitant]
     Route: 048
  13. KARIVA [Concomitant]
     Indication: CONTRACEPTION
     Route: 048
  14. BACLOFEN [Concomitant]
     Route: 048
  15. KEPPRA [Concomitant]
     Indication: TONIC CONVULSION
     Route: 048
  16. MECLIZINE [Concomitant]
     Indication: DIZZINESS
  17. VICODIN [Concomitant]
     Indication: PAIN
     Route: 048
  18. MULTI-VITAMIN [Concomitant]
     Route: 048
  19. ZANAFLEX [Concomitant]
     Route: 048
  20. LYRICA [Concomitant]
     Route: 048
  21. GABAPENTIN [Concomitant]
     Route: 048
  22. TYSABRI [Suspect]
     Indication: MULTIPLE SCLEROSIS
     Route: 042
     Dates: start: 20090107
  23. DIAZEPAM [Concomitant]
     Route: 048
  24. ZOFRAN [Concomitant]
     Indication: DIZZINESS
     Route: 048
  25. MARINOL [Concomitant]
     Route: 048
  26. ZINC [Concomitant]
     Route: 048

REACTIONS (1)
  - TONIC CONVULSION [None]
